FAERS Safety Report 5025117-2 (Version None)
Quarter: 2006Q2

REPORT INFORMATION
  Report Type: 
  Country: None (occurrence: None)
  Receive Date: 20060607
  Receipt Date: 20060526
  Transmission Date: 20061013
  Serious: No
  Sender: FDA-Public Use
  Company Number: 163-20785-06050881

PATIENT
  Age: 45 Year
  Sex: Female

DRUGS (1)
  1. THALOMID [Suspect]
     Indication: MULTIPLE MYELOMA
     Dosage: 100 - 200 MG, DAILY, ORAL
     Route: 048
     Dates: start: 20051221

REACTIONS (1)
  - NO ADVERSE EFFECT [None]
